FAERS Safety Report 25251685 (Version 1)
Quarter: 2025Q2

REPORT INFORMATION
  Report Type: Spontaneous
  Country: CN (occurrence: CN)
  Receive Date: 20250429
  Receipt Date: 20250429
  Transmission Date: 20250717
  Serious: Yes (Hospitalization)
  Sender: PFIZER
  Company Number: CN-PFIZER INC-PV202500049429

PATIENT
  Age: 16 Year
  Sex: Female
  Weight: 37 kg

DRUGS (3)
  1. SIROLIMUS [Suspect]
     Active Substance: SIROLIMUS
     Indication: Prophylaxis against transplant rejection
     Dosage: 1 MG, 1X/DAY
     Route: 048
     Dates: start: 20250320, end: 20250325
  2. TACROLIMUS [Concomitant]
     Active Substance: TACROLIMUS
     Dosage: 1 MG, 2X/DAY
     Dates: start: 20250320
  3. TACROLIMUS [Concomitant]
     Active Substance: TACROLIMUS
     Dosage: 1MG IN THE MORNING AND 0.5 MG IN THE NIGHT
     Dates: start: 20250324

REACTIONS (2)
  - Mouth ulceration [Unknown]
  - Product prescribing error [Unknown]

NARRATIVE: CASE EVENT DATE: 20250321
